FAERS Safety Report 6572453-4 (Version None)
Quarter: 2010Q1

REPORT INFORMATION
  Report Type: 
  Country: None (occurrence: None)
  Receive Date: 20100205
  Receipt Date: 20100127
  Transmission Date: 20100710
  Serious: Yes (Other)
  Sender: FDA-Public Use
  Company Number: US-PFIZER INC-2010009774

PATIENT
  Sex: Male
  Weight: 140.16 kg

DRUGS (6)
  1. LIPITOR [Suspect]
     Indication: BLOOD CHOLESTEROL INCREASED
     Dosage: 10 MG, 1X/DAY
     Dates: start: 20050101, end: 20070101
  2. CYMBALTA [Concomitant]
     Dosage: UNK
  3. NEXIUM [Concomitant]
     Dosage: UNK
  4. METOPROLOL TARTRATE [Concomitant]
     Dosage: UNK
  5. NIASPAN [Concomitant]
     Indication: BLOOD CHOLESTEROL
     Dosage: 500 MG, UNK
  6. TRAMADOL [Concomitant]
     Dosage: UNK

REACTIONS (6)
  - ACUTE POST ASTHMATIC AMYOTROPHY [None]
  - BLOOD CHOLESTEROL INCREASED [None]
  - BLOOD CREATINE PHOSPHOKINASE INCREASED [None]
  - DRUG HYPERSENSITIVITY [None]
  - HYPOAESTHESIA [None]
  - MYOPATHY [None]
